FAERS Safety Report 6433493-9 (Version None)
Quarter: 2009Q4

REPORT INFORMATION
  Report Type: 
  Country: None (occurrence: None)
  Receive Date: 20091106
  Receipt Date: 20091106
  Transmission Date: 20100525
  Serious: Yes (Hospitalization, Other)
  Sender: FDA-Public Use
  Company Number: None

PATIENT
  Age: 55 Year
  Sex: Female
  Weight: 68.0396 kg

DRUGS (1)
  1. CELEBREX [Suspect]
     Indication: ANALGESIC THERAPY
     Dosage: 1 CAPSULE 1/DAY PO
     Route: 048
     Dates: start: 20091015, end: 20091101

REACTIONS (1)
  - DYSPHAGIA [None]
